FAERS Safety Report 5846625-8 (Version None)
Quarter: 2008Q3

REPORT INFORMATION
  Report Type: 
  Country: None (occurrence: None)
  Receive Date: 20080815
  Receipt Date: 20080811
  Transmission Date: 20090109
  Serious: Yes (Hospitalization)
  Sender: FDA-Public Use
  Company Number: A0741988A

PATIENT
  Age: 39 Year
  Sex: Male

DRUGS (4)
  1. LAMICTAL [Suspect]
     Indication: BIPOLAR DISORDER
     Dosage: 50MG PER DAY
     Route: 048
  2. AMBIEN [Concomitant]
  3. GEODON [Concomitant]
  4. ATIVAN [Concomitant]

REACTIONS (2)
  - ADVERSE EVENT [None]
  - DRUG SCREEN FALSE POSITIVE [None]
